FAERS Safety Report 4574433-7 (Version None)
Quarter: 2005Q1

REPORT INFORMATION
  Report Type: 
  Country: None (occurrence: None)
  Receive Date: 20050208
  Receipt Date: 19980723
  Transmission Date: 20050727
  Serious: No
  Sender: FDA-Public Use
  Company Number: US-GLAXOSMITHKLINE-A0287939A

PATIENT
  Age: 43 Year
  Sex: Female
  Weight: 63.49 kg

DRUGS (6)
  1. PAXIL [Suspect]
     Indication: PANIC DISORDER
     Dosage: 20MG PER DAY
     Route: 048
     Dates: start: 19980523, end: 19980101
  2. PAXIL [Suspect]
     Dosage: 10MG PER DAY
     Route: 048
     Dates: start: 19980101, end: 19980719
  3. L-THYROXINE [Concomitant]
  4. CARDIZEM CD [Concomitant]
  5. DAYPRO [Concomitant]
  6. ORTHO-NOVUM [Concomitant]

REACTIONS (16)
  - ABDOMINAL DISCOMFORT [None]
  - AGITATION [None]
  - ASTHENIA [None]
  - CONFUSIONAL STATE [None]
  - DIZZINESS [None]
  - DRUG WITHDRAWAL SYNDROME [None]
  - FATIGUE [None]
  - FEELING ABNORMAL [None]
  - FEELING HOT AND COLD [None]
  - HYPERHIDROSIS [None]
  - INFLUENZA [None]
  - NAUSEA [None]
  - PARAESTHESIA [None]
  - RESTLESSNESS [None]
  - VERTIGO [None]
  - VOMITING [None]
